FAERS Safety Report 20881644 (Version 10)
Quarter: 2023Q1

REPORT INFORMATION
  Report Type: Report from Study
  Country: GB (occurrence: GB)
  Receive Date: 20220527
  Receipt Date: 20230131
  Transmission Date: 20230417
  Serious: Yes (Life-Threatening, Hospitalization, Other)
  Sender: FDA-Public Use
  Company Number: GB-CELLTRION INC.-2021GB019323

PATIENT

DRUGS (153)
  1. TRASTUZUMAB [Suspect]
     Active Substance: TRASTUZUMAB
     Indication: Breast cancer metastatic
     Dosage: 336 MG, EVERY 3 WEEKS, PHARMCEUTICAL DOSAGE FORM: 230 (CUMULATIVE DOSE: 14383.333 MG)
     Route: 042
     Dates: start: 20180518, end: 20190327
  2. TRASTUZUMAB [Suspect]
     Active Substance: TRASTUZUMAB
     Dosage: 336 MG, EVERY 3 WEEK, DOSE FORM: 230, (CUMULATIVE DOSE TO FIRST REACTION:14383.333 MG); DOSAGE FORM:
     Route: 042
     Dates: start: 20180518, end: 20190427
  3. TRASTUZUMAB [Suspect]
     Active Substance: TRASTUZUMAB
     Dosage: 450 MG 1 TOTAL (LOADING DOSE) DOSE FORM:230; DOSAGE FORM: INFUSION, SOLUTION
     Route: 042
     Dates: start: 20151105, end: 20151105
  4. TRASTUZUMAB [Suspect]
     Active Substance: TRASTUZUMAB
     Dosage: 350 MILLIGRAM, Q3W, (MAINTENANCE DOSE; DOSE FORM: 230; CUMULATIVE DOSE: 33.333332 MG)
     Route: 042
     Dates: start: 20151203, end: 20180327
  5. TRASTUZUMAB [Suspect]
     Active Substance: TRASTUZUMAB
     Dosage: 350 MG, EVERY 3 WEEK (MAINTENANCE DOSE; DOSE FORM: 230; CUMULATIVE DOSE: 33.333332 MG); DOSAGE FORM:
     Route: 042
     Dates: start: 20151203, end: 20180427
  6. TRASTUZUMAB [Suspect]
     Active Substance: TRASTUZUMAB
     Dosage: UNK UNK, 1/WEEK
     Route: 042
     Dates: start: 20151203, end: 20180427
  7. TRASTUZUMAB [Suspect]
     Active Substance: TRASTUZUMAB
     Dosage: 450 MG (LOADING DOSE, 16.6 MG, MAINTENANCE DOSE; DOSE FORM: 230)
     Route: 042
     Dates: start: 20151105, end: 20151105
  8. TRASTUZUMAB [Suspect]
     Active Substance: TRASTUZUMAB
     Dosage: 336 MG, 3/WEEK
     Route: 042
     Dates: start: 20180518, end: 20190327
  9. TRASTUZUMAB [Suspect]
     Active Substance: TRASTUZUMAB
     Dosage: 350 MG, EVERY 3 WEEKS
     Route: 042
     Dates: start: 20151203, end: 20180427
  10. DOCETAXEL [Suspect]
     Active Substance: DOCETAXEL
     Indication: Breast cancer metastatic
     Dosage: 124 MG, EVERY 3 WEEK/Q3W (PREVIOUS CUMULATIVE DOSE: 147.61905 MG)
     Route: 042
     Dates: start: 20151106, end: 20151106
  11. DOCETAXEL [Suspect]
     Active Substance: DOCETAXEL
     Dosage: 124 MG, Q2WEEKS
     Route: 042
     Dates: start: 20151106, end: 20151106
  12. DOCETAXEL [Suspect]
     Active Substance: DOCETAXEL
     Indication: Breast cancer metastatic
     Dosage: 124 MG, Q2WEEKS (DOSE FORM: 120)
     Route: 042
     Dates: start: 20151106, end: 20151106
  13. PACLITAXEL [Suspect]
     Active Substance: PACLITAXEL
     Indication: Breast cancer metastatic
     Dosage: 138 MG, EVERY 4 WEEKS (CUMULATIVE DOSE: 9.857142 MG)
     Route: 042
     Dates: start: 20151203, end: 20160203
  14. PACLITAXEL [Suspect]
     Active Substance: PACLITAXEL
     Dosage: 139 MG, EVERY 4 WEEKS (CUMULATIVE DOSE: 44.67857 MG)
     Route: 042
     Dates: start: 20151210
  15. PACLITAXEL [Suspect]
     Active Substance: PACLITAXEL
     Dosage: 68 MG, EVERY 1 WEEKS (DATE OF LAST ADMINISTERED DOSE: 10-MAR-2016; CUMULATIVE DOSE: 903.4286  MG)
     Route: 042
     Dates: start: 20160303, end: 20160310
  16. PACLITAXEL [Suspect]
     Active Substance: PACLITAXEL
     Dosage: 102 MG, EVERY 4 WEEKS (CUMULATIVE DOSE: 13.143 MG, PREVIOUS: 236.78572 MG)
     Route: 042
     Dates: start: 20160204, end: 20160218
  17. PACLITAXEL [Suspect]
     Active Substance: PACLITAXEL
     Dosage: 102 MG, EVERY 4 WEEKS (CUMULATIVE DOSE: 236.78572 MG)
     Route: 042
     Dates: start: 20160204, end: 20160218
  18. PACLITAXEL [Suspect]
     Active Substance: PACLITAXEL
     Dosage: 102 MG, EVERY 4 WEEKS (CUMULATIVE DOSE: 236.78572 MG)
     Route: 042
     Dates: start: 20160204, end: 20160218
  19. PACLITAXEL [Suspect]
     Active Substance: PACLITAXEL
     Dosage: 102 MG, EVERY 4 WEEKS (CUMULATIVE DOSE: 236.78572 MG)
     Route: 042
     Dates: start: 20160204, end: 20160218
  20. PACLITAXEL [Suspect]
     Active Substance: PACLITAXEL
     Dosage: 120 MG, EVERY 4 WEEKS (34.75 MG CD, 884 MG, 4.92857142 MG; CUMULATIVE DOSE: 229.5 MG)
     Route: 042
     Dates: start: 20160204
  21. PACLITAXEL [Suspect]
     Active Substance: PACLITAXEL
     Dosage: 138 MG, Q4WEEKS/Q4W (CUMULATIVE DOSE:13.143 MG)
     Route: 042
     Dates: start: 20151203, end: 20160203
  22. PACLITAXEL [Suspect]
     Active Substance: PACLITAXEL
     Dosage: 139 MG, Q4WEEKS/Q4 (CUMULATIVE DOSE: 13.143 MG)
     Route: 042
     Dates: start: 20151210
  23. PACLITAXEL [Suspect]
     Active Substance: PACLITAXEL
     Dosage: 102 MG, Q4WEEKS
     Route: 042
     Dates: start: 20160204, end: 20160218
  24. PACLITAXEL [Suspect]
     Active Substance: PACLITAXEL
     Dosage: 68 MG, 1/WEEK (CUMULATIVE DOSE: 13.143 MG)
     Route: 042
     Dates: start: 20160303, end: 20160310
  25. PACLITAXEL [Suspect]
     Active Substance: PACLITAXEL
     Dosage: 68 MG, 1/WEEK/QW (CUMULATIVE DOSE: 13.143 MG)
     Route: 042
     Dates: start: 20160310
  26. PACLITAXEL [Suspect]
     Active Substance: PACLITAXEL
     Dosage: 134 MG, EVERY 4 WEEKS (CUMULATIVE DOSE: 229.5 MG)
     Route: 042
     Dates: start: 20151210
  27. PACLITAXEL [Suspect]
     Active Substance: PACLITAXEL
     Dosage: 125 MG, EVERY 4 WEEKS, 34.75 MG CD, 884 MG, 4.92857142 MG
     Route: 042
     Dates: start: 20160204
  28. PACLITAXEL [Suspect]
     Active Substance: PACLITAXEL
     Dosage: 139 MILLIGRAM, Q28D (Q4W)
     Route: 042
     Dates: start: 20151210
  29. PACLITAXEL [Suspect]
     Active Substance: PACLITAXEL
     Dosage: 120 MILLIGRAM, MONTHLY, EVERY 4 WEEKS (CUMULATIVE DOSE: 44.67857 MG) (DOSAGE FORM:120; CUMULATIVE DO
     Route: 042
     Dates: start: 20151210
  30. PACLITAXEL [Suspect]
     Active Substance: PACLITAXEL
     Dosage: 120 MILLIGRAM, MONTHLY, EVERY 4 WEEKS (CUMULATIVED DOSE: 229.5 MG)/(CUMULATIVE DOSE: 236.78572 MG) (
     Route: 042
     Dates: start: 20160204, end: 20160218
  31. PACLITAXEL [Suspect]
     Active Substance: PACLITAXEL
     Dosage: 138 MILLIGRAM, MONTHLY, EVERY 4 WEEKS (CUMULATIVE DOSE: 229.5 MG) (DOSAGE FORM: 120; CUMULATIVE DOSE
     Route: 042
     Dates: start: 20151203, end: 20160203
  32. PACLITAXEL [Suspect]
     Active Substance: PACLITAXEL
     Dosage: 120 MILLIGRAM, MONTHLY, EVERY 4 WEEKS (34.75 MG CD, 884 MG, 4.92857142 MG; CUMULATIVE) (DOSAGE FORM:
     Route: 042
     Dates: start: 20160204, end: 20160218
  33. PACLITAXEL [Suspect]
     Active Substance: PACLITAXEL
     Dosage: 120 MG, Q4W (CUMULATIVED DOSE: 229.5 MG)
     Route: 042
     Dates: start: 20160204, end: 20160218
  34. PACLITAXEL [Suspect]
     Active Substance: PACLITAXEL
     Dosage: 120 MG, Q4W 120 MILLIGRAM, 34.75 MG CD, 884 MG, 4.92857142 MG)(CUMULATIVE DOSE TO FIRST REACTION: 27
     Route: 042
     Dates: start: 20160204, end: 20160218
  35. PACLITAXEL [Suspect]
     Active Substance: PACLITAXEL
     Dosage: 139 MILLIGRAM, Q4WEEKS
     Route: 042
     Dates: start: 20151210
  36. PACLITAXEL [Suspect]
     Active Substance: PACLITAXEL
     Dosage: 138 MILLIGRAM, Q4WEEKS
     Route: 042
     Dates: start: 20151203, end: 20160203
  37. PACLITAXEL [Suspect]
     Active Substance: PACLITAXEL
     Dosage: 102 MILLIGRAM, Q4WEEKS
     Route: 042
     Dates: start: 20160204, end: 20160218
  38. PACLITAXEL [Suspect]
     Active Substance: PACLITAXEL
     Dosage: 68 MILLIGRAM, 1/WEEK
     Route: 042
     Dates: start: 20160303, end: 20160310
  39. PACLITAXEL [Suspect]
     Active Substance: PACLITAXEL
     Dosage: 120 MG, Q4W MONTHLY, EVERY 4 WEEKS (CUMULATIVE DOSE: 44.67857 MG)
     Route: 042
     Dates: start: 20151210
  40. PACLITAXEL [Suspect]
     Active Substance: PACLITAXEL
     Dosage: 68 MG, QW ((DATE OF LAST ADMINISTERED DOSE: 10-MAR-2)
     Route: 042
     Dates: start: 20160303, end: 20160310
  41. PACLITAXEL [Suspect]
     Active Substance: PACLITAXEL
     Dosage: 138 MG, Q4W (MONTHLY, EVERY 4 WEEKS (CUMULATIVE)
     Route: 042
     Dates: start: 20151203, end: 20160203
  42. PACLITAXEL [Suspect]
     Active Substance: PACLITAXEL
     Dosage: 102 MG, Q4W ((CUMULATIVED DOSE: 229.5 MG)
     Route: 042
     Dates: start: 20160204, end: 20160218
  43. PACLITAXEL [Suspect]
     Active Substance: PACLITAXEL
     Dosage: 120 MG, Q4W (MONTHLY, EVERY 4 WEEKS (34.75 MG CD,)884 MG, 4.92857142 MG; CUMULATIVE
     Route: 042
     Dates: start: 20160204, end: 20160218
  44. PACLITAXEL [Suspect]
     Active Substance: PACLITAXEL
     Dosage: 139 MG, Q4W
     Route: 042
     Dates: start: 20151210
  45. PACLITAXEL [Suspect]
     Active Substance: PACLITAXEL
     Dosage: 102 MG, EVERY 4 WEEKS (CUMULATIVE DOSE: 236.78572 MG)
     Route: 042
     Dates: start: 20160204, end: 20160218
  46. PACLITAXEL [Suspect]
     Active Substance: PACLITAXEL
     Dosage: 120 MG, Q4W MONTHLY, EVERY 4 WEEKS (CUMULATIVE DOSE: 236.78572 MG)
     Route: 042
     Dates: start: 20160204, end: 20160218
  47. PACLITAXEL [Suspect]
     Active Substance: PACLITAXEL
     Dosage: 68 MG, QW 68 MG, EVERY 1 WEEKS (DATE OF LAST ADMINISTER
     Route: 042
     Dates: start: 20160303, end: 20160310
  48. PACLITAXEL [Suspect]
     Active Substance: PACLITAXEL
     Dosage: 139 MG, EVERY 4 WEEKS
     Route: 042
     Dates: start: 20151210
  49. PACLITAXEL [Suspect]
     Active Substance: PACLITAXEL
     Dosage: 138 MG, EVERY 4 WEEKS
     Route: 042
     Dates: start: 20151203, end: 20160203
  50. PACLITAXEL [Suspect]
     Active Substance: PACLITAXEL
     Dosage: 102 MG, DRUG INTERVAL 4 WEEK
     Route: 042
     Dates: start: 20160204, end: 20160218
  51. PACLITAXEL [Suspect]
     Active Substance: PACLITAXEL
     Dosage: 68 MILLIGRAM, DRUG INTERVAL 1 WEEK
     Route: 042
     Dates: start: 20160303, end: 20160310
  52. PACLITAXEL [Suspect]
     Active Substance: PACLITAXEL
     Dosage: 125 MG, Q4W (CUMULATIVE DOSE TO FIRST REACTION: 13.143 MG)
     Route: 042
     Dates: start: 20160204, end: 20160218
  53. PACLITAXEL [Suspect]
     Active Substance: PACLITAXEL
     Dosage: 120 MILLIGRAM, 4/WEEK
     Route: 042
     Dates: start: 20151210
  54. PACLITAXEL [Suspect]
     Active Substance: PACLITAXEL
     Indication: Breast cancer metastatic
     Dosage: 138 MG, EVERY 4 WEEKS (CUMULATIVE DOSE: 9.857142 MG)
     Route: 042
     Dates: start: 20151203, end: 20160203
  55. PACLITAXEL [Suspect]
     Active Substance: PACLITAXEL
     Dosage: 44.6 MG, EVERY 4 DAYS, 34.75 MG CD, 884 MG, 4.92857142 MG
     Route: 042
     Dates: start: 20151210
  56. PACLITAXEL [Suspect]
     Active Substance: PACLITAXEL
     Dosage: 134 MG, Q4W (CUMULATIVE DOSE TO FIRST REACTION: 13.143 MG)
     Route: 042
     Dates: start: 20151210
  57. PACLITAXEL [Suspect]
     Active Substance: PACLITAXEL
     Dosage: 139 MG, EVERY 4 WEEKS
     Route: 041
     Dates: start: 20151210
  58. PACLITAXEL [Suspect]
     Active Substance: PACLITAXEL
     Dosage: 125 MG, Q4W (CUMULATIVE DOSE TO FIRST REACTION: 13.143 MG)
     Route: 042
     Dates: start: 20160204, end: 20160218
  59. PACLITAXEL [Suspect]
     Active Substance: PACLITAXEL
     Dosage: 102 MG, EVERY 4 WEEKS
     Route: 042
     Dates: start: 20160204, end: 20160218
  60. PACLITAXEL [Suspect]
     Active Substance: PACLITAXEL
     Dosage: 68 MG, WEEKLY
     Route: 042
     Dates: start: 20160303, end: 20160310
  61. PACLITAXEL [Suspect]
     Active Substance: PACLITAXEL
     Dosage: 102 MG, WEEKLY (CUMULATIVE DOSE TO FIRST REACTION: 13.143 MG)
     Route: 042
     Dates: start: 20160303, end: 20160310
  62. PACLITAXEL [Suspect]
     Active Substance: PACLITAXEL
     Dosage: 134 MG, EVERY 4 WEEKS (CUMULATIVE DOSE: 229.5 MG)
     Route: 042
     Dates: start: 20151210
  63. PACLITAXEL [Suspect]
     Active Substance: PACLITAXEL
     Dosage: 139 MG, EVERY 4 WEEKS
     Route: 042
     Dates: start: 20151210
  64. PACLITAXEL [Suspect]
     Active Substance: PACLITAXEL
     Dosage: 120 MILLIGRAM, EVERY 4 WEEKS
     Route: 042
     Dates: start: 20151210
  65. PACLITAXEL [Suspect]
     Active Substance: PACLITAXEL
     Dosage: 138 MILLIGRAM, MONTHLY, EVERY 4 WEEKS (CUMULATIVE DOSE: 229.5 MG) (DOSAGE FORM: 120;  CUMULATIVE DOS
     Route: 042
     Dates: start: 20151203, end: 20160203
  66. PACLITAXEL [Suspect]
     Active Substance: PACLITAXEL
     Dosage: 120 MILLIGRAM, MONTHLY, EVERY 4 WEEKS (34.75 MG CD, 884 MG, 4.92857142 MG; CUMULATIVE)
     Route: 042
     Dates: start: 20160204, end: 20160218
  67. PACLITAXEL [Suspect]
     Active Substance: PACLITAXEL
     Indication: Breast cancer metastatic
     Dosage: 102 MG, EVERY 4 WEEKS
     Route: 042
     Dates: start: 20151203, end: 20160203
  68. PACLITAXEL [Suspect]
     Active Substance: PACLITAXEL
     Dosage: 139 MG, EVERY 4 WEEKS
     Route: 042
     Dates: start: 20151210
  69. PACLITAXEL [Suspect]
     Active Substance: PACLITAXEL
     Dosage: 102 MG, EVERY 4 WEEKS
     Route: 042
     Dates: start: 20160204, end: 20160218
  70. PACLITAXEL [Suspect]
     Active Substance: PACLITAXEL
     Dosage: 68 MG, EVERY WEEK
     Route: 042
     Dates: start: 20160303, end: 20160310
  71. PACLITAXEL [Suspect]
     Active Substance: PACLITAXEL
     Indication: Breast cancer metastatic
     Dosage: 120 MILLIGRAM, Q4WEEKS
     Route: 042
     Dates: start: 20151210
  72. PACLITAXEL [Suspect]
     Active Substance: PACLITAXEL
     Dosage: 44.6 MG, EVERY 4 DAYS, 34.75 MG CD, 884 MG, 4.92857142 MG
     Route: 042
     Dates: start: 20151210
  73. PACLITAXEL [Suspect]
     Active Substance: PACLITAXEL
     Dosage: 102 MG, WEEKLY (CUMULATIVE DOSE TO FIRST REACTION: 13.143 MG)
     Route: 042
     Dates: start: 20160303, end: 20160310
  74. PACLITAXEL [Suspect]
     Active Substance: PACLITAXEL
     Indication: Breast cancer metastatic
     Dosage: 102 MG, QW (CUMULATIVE DOSE TO FIRST REACTION: 13.143 MG)
     Route: 042
     Dates: start: 20160303, end: 20160310
  75. PERTUZUMAB [Suspect]
     Active Substance: PERTUZUMAB
     Indication: Breast cancer metastatic
     Dosage: 420 MG, EVERY 3 WEEKS (MAINTENANCE DOSE, DOSE FORM: 230; CUMULATIVE DOSE; 40.0 MG)
     Route: 042
     Dates: start: 20151203
  76. PERTUZUMAB [Suspect]
     Active Substance: PERTUZUMAB
     Dosage: 840 MG, SINGLE (LOADING DOSE)
     Route: 042
     Dates: start: 20151105, end: 20151105
  77. PERTUZUMAB [Suspect]
     Active Substance: PERTUZUMAB
     Indication: Breast cancer metastatic
     Dosage: 840 MG, TOTAL (DOSE FORM: 120)/840 MG, TOTAL; IN TOTAL
     Route: 042
     Dates: start: 20151105, end: 20151105
  78. PERTUZUMAB [Suspect]
     Active Substance: PERTUZUMAB
     Dosage: 420 MILLIGRAM, Q3W, MAINTENANCE DOSE (DOSE FORM: 120)/420 MG, Q3W
     Route: 042
     Dates: start: 20151203
  79. PERTUZUMAB [Suspect]
     Active Substance: PERTUZUMAB
     Indication: Breast cancer metastatic
     Dosage: 840 MILLIGRAM
     Route: 042
     Dates: start: 20151105, end: 20151105
  80. PERTUZUMAB [Suspect]
     Active Substance: PERTUZUMAB
     Dosage: 420 MG, DRUG INTERVAL EVERY 3 WEEKS (DOSE FORM: 230, CUMULATIVE DOSE: 40.0 MG)
     Route: 042
     Dates: start: 20151203
  81. PERTUZUMAB [Suspect]
     Active Substance: PERTUZUMAB
     Dosage: LOADING DOSE
     Route: 042
     Dates: start: 20151105, end: 20151105
  82. PERTUZUMAB [Suspect]
     Active Substance: PERTUZUMAB
     Dosage: MAINTENANCE DOSE
     Route: 042
     Dates: start: 20151203
  83. HERCEPTIN [Suspect]
     Active Substance: TRASTUZUMAB
     Indication: Breast cancer metastatic
     Dosage: 450 MG, TOTAL (LOADING DOSE, 16.6 MG, MAINTENANCE DOSE; DOSE FORM: 230)
     Route: 042
     Dates: start: 20151105, end: 20151105
  84. HERCEPTIN [Suspect]
     Active Substance: TRASTUZUMAB
     Dosage: 350 MG, EVERY 3 WEEKS (MAINTENANCE DOSE, DATE OF LAST ADMINISTERED DOSE: 27-APR-2018; DOSE FORM: 230
     Route: 042
     Dates: start: 20151203, end: 20180427
  85. HERCEPTIN [Suspect]
     Active Substance: TRASTUZUMAB
     Dosage: 300 UNK; TIW
     Route: 042
     Dates: start: 20151203, end: 20180427
  86. HERCEPTIN [Suspect]
     Active Substance: TRASTUZUMAB
     Dosage: 336 MILLIGRAM, Q3W (DATE AND TIME OF LAST ADMINISTRATION 27 APR 2019); CUMULATIVE DOSE TO FIRST REAC
     Route: 042
     Dates: start: 20180518
  87. HERCEPTIN [Suspect]
     Active Substance: TRASTUZUMAB
     Indication: Breast cancer metastatic
     Dosage: 450 MG, 1X; IN TOTAL (DOSAGE FORM: 230)
     Route: 042
     Dates: start: 20151105, end: 20151105
  88. HERCEPTIN [Suspect]
     Active Substance: TRASTUZUMAB
     Dosage: 300 UNK, TIW; (DOSAGE FORM: 230)
     Route: 042
     Dates: start: 20151203, end: 20180427
  89. HERCEPTIN [Suspect]
     Active Substance: TRASTUZUMAB
     Dosage: 336 MG, TIW (DATE AND TIME OF LAST ADMINISTRATION 27 APR 2019)
     Route: 042
     Dates: start: 20180518, end: 20190427
  90. PACLITAXEL [Suspect]
     Active Substance: PACLITAXEL
     Indication: Breast cancer metastatic
     Dosage: 138 MG, Q4W (CUMULATIVE DOSE: 229.5MG)
     Route: 042
     Dates: start: 20151203, end: 20161203
  91. PACLITAXEL [Suspect]
     Active Substance: PACLITAXEL
     Dosage: 138 MG EVERY 4 WEEKS (CUMULATIVE DOSE: 229.5 MG)
     Route: 042
     Dates: start: 20151203, end: 20160203
  92. PACLITAXEL [Suspect]
     Active Substance: PACLITAXEL
     Dosage: 120 MG, Q4W ((34.75 MG CD, 884 MG, 4.92857142 MG; CD: 229.5 MG)
     Route: 042
     Dates: start: 20160204
  93. PACLITAXEL [Suspect]
     Active Substance: PACLITAXEL
     Dosage: 102 MG, EVERY 4 WEEKS (CUMULATIVED DOSE: 229.5 MG)/ (CUMULATIVE DOSE: 236.78572 MG)
     Route: 042
     Dates: start: 20160204, end: 20160218
  94. PACLITAXEL [Suspect]
     Active Substance: PACLITAXEL
     Dosage: 68 MG, EVERY 1 WEEK/QW (DATE OF LAST ADMINISTERED DOSE: 10-MAR-2016; CUMULATIVE DOSE: 229.5 MG)
     Route: 042
     Dates: start: 20160303, end: 20160310
  95. PACLITAXEL [Suspect]
     Active Substance: PACLITAXEL
     Dosage: 138 MG, Q4W (CUMULATIVE DOSE: 229.5MG)
     Route: 042
     Dates: start: 20151203, end: 20161203
  96. PACLITAXEL [Suspect]
     Active Substance: PACLITAXEL
     Dosage: 138 MG, Q4W (CUMULATIVE DOSE: 229.5MG)
     Dates: start: 20151210
  97. ATORVASTATIN [Concomitant]
     Active Substance: ATORVASTATIN
     Indication: Product used for unknown indication
     Dosage: 40 MG, EVERY 1 DAY/QD (DOSE FORM: 245) (CUMD TO FIRST REA)
     Route: 048
     Dates: start: 20170701
  98. ATORVASTATIN [Concomitant]
     Active Substance: ATORVASTATIN
     Dosage: 350 MILLIGRAM, Q3W, (MAINTENANCE; CUM DOSE: 33.333332 MG)
     Route: 048
  99. ATORVASTATIN [Concomitant]
     Active Substance: ATORVASTATIN
     Dosage: 40 MG, DAILY
     Dates: start: 20170701
  100. LOPERAMIDE [Concomitant]
     Active Substance: LOPERAMIDE
     Indication: Prophylaxis against diarrhoea
     Dosage: 2 MG (4 TABLET TWICE A DAY FOR 3 DAYS; DOSE FORM: 245)
     Route: 048
     Dates: start: 20151203
  101. LOPERAMIDE [Concomitant]
     Active Substance: LOPERAMIDE
     Indication: Prophylaxis
     Dosage: 4 DF (0.5 PER DAY), BID FOR 3 DAYS (CUMULATIVE DOSE: 32.0 {DF})
     Route: 048
     Dates: start: 20151203
  102. LOPERAMIDE [Concomitant]
     Active Substance: LOPERAMIDE
     Dosage: 2 MG, 4 TABLET TWICE A DAY FOR 3 DAYS
     Dates: start: 20151203
  103. TRAMADOL HYDROCHLORIDE [Concomitant]
     Active Substance: TRAMADOL HYDROCHLORIDE
     Indication: Prophylaxis
     Dosage: 50 MG (DOSE FORM: 5)
     Route: 048
     Dates: start: 20151105
  104. TRAMADOL HYDROCHLORIDE [Concomitant]
     Active Substance: TRAMADOL HYDROCHLORIDE
     Dosage: 50 MG, UNK
     Route: 048
     Dates: start: 20151105
  105. TRAMADOL HYDROCHLORIDE [Concomitant]
     Active Substance: TRAMADOL HYDROCHLORIDE
     Indication: Prophylaxis
     Dosage: 50 MG
     Dates: start: 20151105
  106. ROSUVASTATIN [Concomitant]
     Active Substance: ROSUVASTATIN
     Indication: Product used for unknown indication
     Dosage: 5 MG (DOSE FORM:245)
     Route: 048
     Dates: start: 201806, end: 201911
  107. ROSUVASTATIN [Concomitant]
     Active Substance: ROSUVASTATIN
     Dosage: 5 MILLIGRAM
     Route: 048
     Dates: start: 201807, end: 201911
  108. ROSUVASTATIN [Concomitant]
     Active Substance: ROSUVASTATIN
     Dosage: 5 MILLIGRAM
     Route: 048
     Dates: start: 201806, end: 201911
  109. ROSUVASTATIN [Concomitant]
     Active Substance: ROSUVASTATIN
     Dosage: 5 MG
     Dates: start: 201806, end: 201911
  110. ROSUVASTATIN CALCIUM [Concomitant]
     Active Substance: ROSUVASTATIN CALCIUM
     Indication: Product used for unknown indication
     Dosage: UNK
  111. ROSUVASTATIN CALCIUM [Concomitant]
     Active Substance: ROSUVASTATIN CALCIUM
     Indication: Product used for unknown indication
     Dosage: 5 MG
     Route: 048
     Dates: start: 201806, end: 201911
  112. DEXAMETHASONE [Concomitant]
     Active Substance: DEXAMETHASONE
     Indication: Prophylaxis
     Dosage: 8 MILLIGRAM, UNK
     Route: 048
     Dates: start: 20151105
  113. DEXAMETHASONE [Concomitant]
     Active Substance: DEXAMETHASONE
     Indication: Prophylaxis
     Dosage: 8 MG, UNK
     Dates: start: 20151105
  114. TRIMETHOPRIM [Concomitant]
     Active Substance: TRIMETHOPRIM
     Indication: Urinary tract infection
     Dosage: 400 MILLIGRAM, (200 MG, 2X/DAY)
     Route: 048
     Dates: start: 20151210
  115. TRIMETHOPRIM [Concomitant]
     Active Substance: TRIMETHOPRIM
     Dosage: 200 MG, 0.5
     Dates: start: 20151210
  116. TRIMETHOPRIM [Concomitant]
     Active Substance: TRIMETHOPRIM
     Dosage: 400 MG
     Dates: start: 20151210
  117. METOCLOPRAMIDE [Concomitant]
     Active Substance: METOCLOPRAMIDE
     Indication: Prophylaxis of nausea and vomiting
     Dosage: 10 MG (DOSE FORM: 245)
     Route: 048
     Dates: start: 20151203
  118. METOCLOPRAMIDE [Concomitant]
     Active Substance: METOCLOPRAMIDE
     Indication: Prophylaxis
     Dosage: UNK
  119. METOCLOPRAMIDE [Concomitant]
     Active Substance: METOCLOPRAMIDE
     Indication: Prophylaxis
     Dosage: 10 MILLIGRAM
     Dates: start: 20151203
  120. RANITIDINE [Concomitant]
     Active Substance: RANITIDINE
     Indication: Prophylaxis
     Dosage: 150 MG, BID FOR 3 DAYS (1 TABLET TWICE A DAY FOR 3 DAYS; DOSE FORM: 245)
     Route: 048
     Dates: start: 20151203
  121. RANITIDINE [Concomitant]
     Active Substance: RANITIDINE
     Indication: Mucosal inflammation
  122. RANITIDINE [Concomitant]
     Active Substance: RANITIDINE
     Indication: Prophylaxis
     Dosage: 150 MG (1 TABLET TWICE A DAY FOR 3 DAYS)
     Dates: start: 20151203
  123. RAMIPRIL [Concomitant]
     Active Substance: RAMIPRIL
     Indication: Product used for unknown indication
     Dosage: 2.5 MG, EVERY 1 DAY (DOSE FORM: 245)(CUMULATIVE DOSE TO FIRST REACTION: 1347.3959 MG)
     Route: 048
     Dates: start: 20170523
  124. RAMIPRIL [Concomitant]
     Active Substance: RAMIPRIL
     Dosage: 1.25 MG 1.25 MILLIGRAM,1.25 MG, EVERY 1 DAY (START 23-MAY-2017)
     Route: 048
     Dates: start: 20170523
  125. RAMIPRIL [Concomitant]
     Active Substance: RAMIPRIL
     Dosage: 1.25 MG (0.5 PER DAY)
     Dates: start: 20170523
  126. ASPIRIN [Concomitant]
     Active Substance: ASPIRIN
     Indication: Product used for unknown indication
     Dosage: 75 MG EVERY 1 DAY (CUMULATIVE DOSE TO FIRST REACTION: 40421.875 MG, 245 DOSE FORM) (CUM DOSE : 40421
     Route: 048
     Dates: start: 20170523, end: 20170701
  127. ASPIRIN [Concomitant]
     Active Substance: ASPIRIN
     Dosage: 75 MG, QD 75 MILLIGRAM, (75 MG, 1X/DAY)
     Route: 048
     Dates: start: 20170701
  128. ASPIRIN [Concomitant]
     Active Substance: ASPIRIN
     Indication: Product used for unknown indication
     Dosage: 75 MG, 1X/DAY
     Dates: start: 20170523, end: 20170701
  129. CETIRIZINE [Concomitant]
     Active Substance: CETIRIZINE HYDROCHLORIDE
     Indication: Prophylaxis
     Dosage: 10 MILLIGRAM, (1 TABLET AT NIGHT FOR 3 DAYS)(PHARMACEUTICAL DOSAGE FORM 245)
     Route: 048
     Dates: start: 20151203
  130. CETIRIZINE [Concomitant]
     Active Substance: CETIRIZINE HYDROCHLORIDE
     Indication: Antiviral prophylaxis
  131. CETIRIZINE [Concomitant]
     Active Substance: CETIRIZINE HYDROCHLORIDE
     Indication: Prophylaxis
     Dosage: 10 MG (1 TABLET AT NIGHT FOR 3 DAYS)
     Dates: start: 20151203
  132. CLOPIDOGREL [Concomitant]
     Active Substance: CLOPIDOGREL BISULFATE
     Indication: Product used for unknown indication
     Dosage: UNK (PHARMACEUTICAL DOSAGE FORM 245)
     Route: 048
     Dates: start: 20170701
  133. CLOPIDOGREL [Concomitant]
     Active Substance: CLOPIDOGREL BISULFATE
     Dosage: UNK
     Route: 048
     Dates: start: 20170701
  134. CLOPIDOGREL [Concomitant]
     Active Substance: CLOPIDOGREL BISULFATE
     Indication: Antiviral prophylaxis
  135. CLOPIDOGREL [Concomitant]
     Active Substance: CLOPIDOGREL BISULFATE
     Dosage: UNK
     Dates: start: 20170701
  136. ASPIRIN [Concomitant]
     Active Substance: ASPIRIN
     Indication: Product used for unknown indication
     Dosage: 75 MG, EVERY 1 DAY (DOSE FORM: 245)
     Route: 048
     Dates: start: 20170523, end: 20170701
  137. ASPIRIN [Concomitant]
     Active Substance: ASPIRIN
     Dosage: DOSAGE FORM: 245
  138. ASPIRIN [Concomitant]
     Active Substance: ASPIRIN
  139. EZETIMIBE [Concomitant]
     Active Substance: EZETIMIBE
     Indication: Product used for unknown indication
     Dosage: UNK (DOSE FORM:245) START: 2019
     Route: 048
     Dates: start: 2019
  140. EZETIMIBE [Concomitant]
     Active Substance: EZETIMIBE
     Dosage: UNK
     Route: 048
     Dates: start: 2019
  141. EZETIMIBE [Concomitant]
     Active Substance: EZETIMIBE
     Dosage: UNK
     Dates: start: 2019
  142. LANSOPRAZOLE [Concomitant]
     Active Substance: LANSOPRAZOLE
     Indication: Product used for unknown indication
     Dosage: 30 MG, EVERY 1 DAY (DOSE FORM: 5)(CUMULATIVE DOSE TO FIRST REACTION: 14010.0 MG)
     Route: 048
     Dates: start: 20170312
  143. LANSOPRAZOLE [Concomitant]
     Active Substance: LANSOPRAZOLE
     Dosage: 30 MG, DAILY
     Dates: start: 20170312
  144. ASPIRIN [Concomitant]
     Active Substance: ASPIRIN
     Indication: Product used for unknown indication
     Dosage: 75 MILLIGRAM, QD
     Route: 048
     Dates: start: 20170523, end: 20170701
  145. ASPIRIN [Concomitant]
     Active Substance: ASPIRIN
     Dosage: 75 MG, 1X/DAY
     Dates: start: 20170523, end: 20170701
  146. LORATADINE [Concomitant]
     Active Substance: LORATADINE
     Indication: Product used for unknown indication
     Dosage: UNK (DOSAGE FORM 245)
     Route: 048
     Dates: start: 20151119, end: 20151217
  147. LORATADINE [Concomitant]
     Active Substance: LORATADINE
     Dosage: UNK
     Dates: start: 20151119, end: 20151217
  148. CHLORHEXIDINE GLUCONATE [Concomitant]
     Active Substance: CHLORHEXIDINE GLUCONATE
     Indication: Prophylaxis
     Dosage: UNK, (4 EVERY 1 DAY (MOUTHWASH))
     Route: 048
     Dates: start: 20151105
  149. CHLORHEXIDINE GLUCONATE [Concomitant]
     Active Substance: CHLORHEXIDINE GLUCONATE
     Dosage: 0.25 DAY (MOUTHWASH)
     Dates: start: 20151105
  150. TRAMADOL [Concomitant]
     Active Substance: TRAMADOL
     Indication: Prophylaxis
     Dosage: 50 MG (DOSE FORM: 5)
     Route: 048
     Dates: start: 20151105
  151. CHLORHEXIDINE [Concomitant]
     Active Substance: CHLORHEXIDINE
     Indication: Prophylaxis
     Dosage: UNK UNK, QD; 135 DOSE FORM
     Route: 048
     Dates: start: 20151105
  152. CHLORHEXIDINE [Concomitant]
     Active Substance: CHLORHEXIDINE
     Dosage: 4(NO UNIT REPORTED) EVERY 1 DAY (MOUTHWASH)
     Dates: start: 20151105
  153. CHLORHEXIDINE [Concomitant]
     Active Substance: CHLORHEXIDINE
     Dosage: 0.25 DAY (MOUTHWASH)
     Dates: start: 20151105

REACTIONS (34)
  - Chest discomfort [Recovered/Resolved]
  - Escherichia test positive [Not Recovered/Not Resolved]
  - Neuropathy peripheral [Recovered/Resolved]
  - Erythema [Recovered/Resolved]
  - Hypersensitivity [Recovered/Resolved]
  - Dysuria [Recovered/Resolved]
  - Tendonitis [Not Recovered/Not Resolved]
  - Defaecation urgency [Recovered/Resolved]
  - Urinary tract infection [Recovered/Resolved]
  - Urosepsis [Recovered/Resolved]
  - Neuropathy peripheral [Recovered/Resolved]
  - Hypersensitivity [Recovered/Resolved]
  - Anaphylactic reaction [Recovered/Resolved]
  - Diarrhoea [Recovered/Resolved]
  - Dyspnoea [Recovered/Resolved]
  - Neuropathy peripheral [Recovered/Resolved]
  - Erythema [Recovered/Resolved]
  - Neuropathy peripheral [Recovered/Resolved]
  - Neuropathy peripheral [Recovered/Resolved]
  - Tremor [Recovered/Resolved]
  - Bacterial test positive [Recovered/Resolved]
  - Diarrhoea [Recovered/Resolved]
  - Defaecation urgency [Recovered/Resolved]
  - Cystitis noninfective [Recovered/Resolved]
  - Palmar erythema [Recovered/Resolved]
  - Tendonitis [Not Recovered/Not Resolved]
  - Diarrhoea [Recovered/Resolved]
  - Hypertension [Recovered/Resolved]
  - Mucosal inflammation [Recovered/Resolved]
  - Rash [Recovered/Resolved]
  - Malaise [Recovered/Resolved]
  - Tremor [Recovered/Resolved]
  - Fatigue [Recovered/Resolved]
  - Fatigue [Recovered/Resolved]

NARRATIVE: CASE EVENT DATE: 20151201
